FAERS Safety Report 25018412 (Version 1)
Quarter: 2025Q1

REPORT INFORMATION
  Report Type: Spontaneous
  Country: US (occurrence: US)
  Receive Date: 20250227
  Receipt Date: 20250227
  Transmission Date: 20250409
  Serious: No
  Sender: AVADEL CNS PHARMACEUTICALS, LLC
  Company Number: US-AVADEL CNS PHARMACEUTICALS, LLC-2025AVA00155

PATIENT
  Age: 59 Year
  Sex: Female

DRUGS (10)
  1. LUMRYZ [Suspect]
     Active Substance: SODIUM OXYBATE
     Indication: Narcolepsy
     Dosage: 4.5 G, ONCE NIGHTLY AT BEDTIME AT 10 PM
     Dates: start: 20250114
  2. LUMRYZ [Suspect]
     Active Substance: SODIUM OXYBATE
     Indication: Cataplexy
  3. ARMODAFINIL [Concomitant]
     Active Substance: ARMODAFINIL
  4. ZOLOFT [Concomitant]
     Active Substance: SERTRALINE HYDROCHLORIDE
  5. ABILIFY [Concomitant]
     Active Substance: ARIPIPRAZOLE
  6. CRESTOR [Concomitant]
     Active Substance: ROSUVASTATIN CALCIUM
  7. KLONOPIN [Concomitant]
     Active Substance: CLONAZEPAM
  8. PROPRANOLOL [Concomitant]
     Active Substance: PROPRANOLOL HYDROCHLORIDE
  9. FLOVENT [Concomitant]
     Active Substance: FLUTICASONE PROPIONATE
  10. ALBUTEROL [Concomitant]
     Active Substance: ALBUTEROL

REACTIONS (4)
  - Initial insomnia [Not Recovered/Not Resolved]
  - Fatigue [Not Recovered/Not Resolved]
  - Middle insomnia [Not Recovered/Not Resolved]
  - Poor quality sleep [Not Recovered/Not Resolved]

NARRATIVE: CASE EVENT DATE: 20250101
